FAERS Safety Report 6324557-9 (Version None)
Quarter: 2009Q3

REPORT INFORMATION
  Report Type: 
  Country: None (occurrence: None)
  Receive Date: 20090824
  Receipt Date: 20090406
  Transmission Date: 20100115
  Serious: No
  Sender: FDA-Public Use
  Company Number: US-ABBOTT-09P-163-0566762-00

PATIENT
  Age: 71 Year
  Sex: Female
  Weight: 72.64 kg

DRUGS (11)
  1. NIASPAN [Suspect]
     Indication: HIGH DENSITY LIPOPROTEIN DECREASED
     Route: 048
     Dates: start: 20090404, end: 20090405
  2. CRESTOR [Concomitant]
     Indication: BLOOD CHOLESTEROL INCREASED
  3. PLAVIX [Concomitant]
     Indication: CORONARY ARTERIAL STENT INSERTION
  4. METOPROLOL [Concomitant]
     Indication: PALPITATIONS
  5. ISOSORB [Concomitant]
     Indication: CARDIAC OUTPUT DECREASED
  6. PREVACID [Concomitant]
     Indication: GASTROOESOPHAGEAL REFLUX DISEASE
  7. FISH OIL [Concomitant]
     Indication: CARDIOVASCULAR EVENT PROPHYLAXIS
  8. COQ10 [Concomitant]
     Indication: ROUTINE HEALTH MAINTENANCE
  9. ADVAIR HFA [Concomitant]
     Indication: BRONCHITIS CHRONIC
  10. UNKNOWN DECONGESTANTS [Concomitant]
     Indication: HYPERSENSITIVITY
  11. ANTIHISTAMINES [Concomitant]
     Indication: HYPERSENSITIVITY

REACTIONS (6)
  - ADVERSE DRUG REACTION [None]
  - FLUSHING [None]
  - PRURITUS [None]
  - RASH [None]
  - SENSORY DISTURBANCE [None]
  - URTICARIA [None]
